FAERS Safety Report 21261385 (Version 7)
Quarter: 2022Q4

REPORT INFORMATION
  Report Type: Spontaneous
  Country: US (occurrence: US)
  Receive Date: 20220827
  Receipt Date: 20221227
  Transmission Date: 20230112
  Serious: Yes (Hospitalization, Other)
  Sender: FDA-Public Use
  Company Number: US-UNITED THERAPEUTICS-UNT-2022-018520

PATIENT
  Sex: Female
  Weight: 73.469 kg

DRUGS (4)
  1. TYVASO [Suspect]
     Active Substance: TREPROSTINIL
     Indication: Pulmonary arterial hypertension
     Dosage: UNK
     Dates: start: 20201217
  2. TYVASO [Suspect]
     Active Substance: TREPROSTINIL
     Dosage: 54 ?G, QID
  3. TYVASO [Suspect]
     Active Substance: TREPROSTINIL
     Dosage: 30 ?G, QID
  4. TYVASO [Suspect]
     Active Substance: TREPROSTINIL
     Dosage: 54 ?G, QID
     Dates: start: 20220912

REACTIONS (17)
  - Arrhythmia [Unknown]
  - Ileus [Unknown]
  - Lower limb fracture [Unknown]
  - Hypotension [Unknown]
  - Haemoglobin decreased [Unknown]
  - Fistula [Unknown]
  - Animal attack [Recovered/Resolved with Sequelae]
  - Fall [Recovered/Resolved with Sequelae]
  - Impaired healing [Unknown]
  - Feeling abnormal [Unknown]
  - Pain [Unknown]
  - Device malfunction [Unknown]
  - Device malfunction [Unknown]
  - Device operational issue [Unknown]
  - Device operational issue [Unknown]
  - Device physical property issue [Unknown]
  - Device physical property issue [Unknown]

NARRATIVE: CASE EVENT DATE: 20220101
